FAERS Safety Report 15305840 (Version 2)
Quarter: 2018Q4

REPORT INFORMATION
  Report Type: Spontaneous
  Country: US (occurrence: US)
  Receive Date: 20180822
  Receipt Date: 20180830
  Transmission Date: 20190204
  Serious: No
  Sender: FDA-Public Use
  Company Number: US-TEVA-2018-US-945240

PATIENT
  Sex: Female

DRUGS (2)
  1. FLUOCSLN-A (FLUOCINONIDE) [Suspect]
     Active Substance: FLUOCINONIDE
     Indication: SEBORRHOEIC KERATOSIS
  2. FLUOCSLN-A (FLUOCINONIDE) [Suspect]
     Active Substance: FLUOCINONIDE
     Indication: PRURITUS
     Dosage: FORM OF ADMIN: TOPICAL SOLUTION
     Route: 061
     Dates: start: 20180731

REACTIONS (1)
  - Drug ineffective [Unknown]
